FAERS Safety Report 17203323 (Version 2)
Quarter: 2020Q1

REPORT INFORMATION
  Report Type: Spontaneous
  Country: HU (occurrence: HU)
  Receive Date: 20191226
  Receipt Date: 20200110
  Transmission Date: 20200409
  Serious: Yes (Hospitalization, Other)
  Sender: FDA-Public Use
  Company Number: HU-MYLANLABS-2019M1126453

PATIENT

DRUGS (1)
  1. LAMOTRIGINE. [Suspect]
     Active Substance: LAMOTRIGINE
     Indication: EPILEPSY
     Dosage: UNK

REACTIONS (9)
  - Hepatomegaly [Recovered/Resolved]
  - Fatigue [Recovered/Resolved]
  - Drug hypersensitivity [Recovered/Resolved]
  - Pallor [Recovered/Resolved]
  - Haemolysis [Recovered/Resolved]
  - Lymphadenopathy [Recovered/Resolved]
  - Anaemia [Recovered/Resolved]
  - Blood iron increased [Recovered/Resolved]
  - Petit mal epilepsy [Recovered/Resolved]
